FAERS Safety Report 6872377-9 (Version None)
Quarter: 2010Q3

REPORT INFORMATION
  Report Type: 
  Country: None (occurrence: None)
  Receive Date: 20100723
  Receipt Date: 20080917
  Transmission Date: 20110219
  Serious: Yes (Other)
  Sender: FDA-Public Use
  Company Number: US-PFIZER INC-2008078695

PATIENT
  Sex: Female
  Weight: 79.4 kg

DRUGS (10)
  1. CHANTIX [Suspect]
     Indication: SMOKING CESSATION THERAPY
     Dates: start: 20080601
  2. CYMBALTA [Concomitant]
  3. PERCOCET [Concomitant]
  4. MELOXICAM [Concomitant]
  5. PREVACID [Concomitant]
  6. PREMARIN [Concomitant]
  7. METOCLOPRAMIDE [Concomitant]
  8. AMITRIPTYLINE HYDROCHLORIDE [Concomitant]
  9. PERSANTINE [Concomitant]
  10. IRON [Concomitant]

REACTIONS (3)
  - ENERGY INCREASED [None]
  - HALLUCINATION [None]
  - INSOMNIA [None]
